FAERS Safety Report 4728957-X (Version None)
Quarter: 2005Q3

REPORT INFORMATION
  Report Type: 
  Country: None (occurrence: None)
  Receive Date: 20050729
  Receipt Date: 20041116
  Transmission Date: 20060218
  Serious: No
  Sender: FDA-Public Use
  Company Number: US-GLAXOSMITHKLINE-A0534154A

PATIENT
  Age: 11 Year
  Sex: Male

DRUGS (3)
  1. IMITREX [Suspect]
     Indication: MIGRAINE
     Dosage: 75MG VARIABLE DOSE
     Route: 048
  2. IMITREX [Suspect]
     Dosage: 1SPR VARIABLE DOSE
     Route: 045
  3. PROPRANOLOL [Concomitant]

REACTIONS (2)
  - DRUG INEFFECTIVE [None]
  - DYSGEUSIA [None]
